FAERS Safety Report 17139913 (Version 1)
Quarter: 2019Q4

REPORT INFORMATION
  Report Type: Spontaneous
  Country: US (occurrence: US)
  Receive Date: 20191211
  Receipt Date: 20191211
  Transmission Date: 20200122
  Serious: No
  Sender: FDA-Public Use
  Company Number: US-ALEMBIC PHARMACUETICALS LIMITED-2019SCAL000931

PATIENT

DRUGS (2)
  1. MODAFINIL. [Suspect]
     Active Substance: MODAFINIL
     Dosage: 100 MILLIGRAM, BID EVERY MORMIMG
  2. MODAFINIL. [Suspect]
     Active Substance: MODAFINIL
     Indication: LOSS OF CONSCIOUSNESS
     Dosage: 100 MILLIGRAM, QD
     Route: 048
     Dates: start: 201907

REACTIONS (1)
  - Alopecia [Not Recovered/Not Resolved]

NARRATIVE: CASE EVENT DATE: 20191015
